FAERS Safety Report 18944335 (Version 2)
Quarter: 2021Q1

REPORT INFORMATION
  Report Type: Report from Study
  Country: None (occurrence: US)
  Receive Date: 20210226
  Receipt Date: 20210308
  Transmission Date: 20210420
  Serious: Yes (Other)
  Sender: FDA-Public Use
  Company Number: US-ABBVIE-21K-163-3782584-00

PATIENT
  Sex: Female

DRUGS (1)
  1. HUMIRA [Suspect]
     Active Substance: ADALIMUMAB
     Indication: PSORIATIC ARTHROPATHY
     Dosage: CITRATE FREE
     Route: 058

REACTIONS (8)
  - Asthenia [Unknown]
  - Peripheral swelling [Unknown]
  - Skin discolouration [Unknown]
  - Nodule [Not Recovered/Not Resolved]
  - Injection site urticaria [Recovering/Resolving]
  - Pulmonary oedema [Unknown]
  - Depression [Unknown]
  - Fatigue [Recovering/Resolving]
